FAERS Safety Report 8388511-8 (Version None)
Quarter: 2012Q2

REPORT INFORMATION
  Report Type: 
  Country: None (occurrence: None)
  Receive Date: 20120525
  Receipt Date: 20120524
  Transmission Date: 20120825
  Serious: Yes (Hospitalization)
  Sender: FDA-Public Use
  Company Number: DK-ABBOTT-11P-044-0870110-00

PATIENT

DRUGS (5)
  1. SYMBICORT [Concomitant]
     Indication: ASTHMA
     Route: 055
  2. BRICANYL [Concomitant]
     Indication: ASTHMA
  3. HUMIRA [Suspect]
     Indication: RHEUMATOID ARTHRITIS
     Dates: start: 20021107, end: 20110512
  4. METHOTREXATE [Suspect]
     Indication: RHEUMATOID ARTHRITIS
     Route: 058
     Dates: start: 20030418, end: 20110512
  5. PREDNISOLONE [Concomitant]
     Indication: RHEUMATOID ARTHRITIS
     Route: 048
     Dates: start: 20010824, end: 20110512

REACTIONS (2)
  - PULMONARY EMBOLISM [None]
  - DYSPNOEA [None]
